FAERS Safety Report 10043522 (Version 1)
Quarter: 2014Q1

REPORT INFORMATION
  Report Type: Spontaneous
  Country: US (occurrence: US)
  Receive Date: 20140328
  Receipt Date: 20140328
  Transmission Date: 20141002
  Serious: No
  Sender: FDA-Public Use
  Company Number: US-PFIZER INC-2014086327

PATIENT
  Sex: Female

DRUGS (2)
  1. GABAPENTIN [Suspect]
     Dosage: UNK
  2. GABAPENTIN [Suspect]
     Dosage: UNK

REACTIONS (5)
  - Influenza [Unknown]
  - Muscle twitching [Unknown]
  - Malaise [Unknown]
  - Drug ineffective [Unknown]
  - Weight increased [Unknown]
